FAERS Safety Report 10051157 (Version 1)
Quarter: 2014Q2

REPORT INFORMATION
  Report Type: Spontaneous
  Country: FR (occurrence: FR)
  Receive Date: 20140401
  Receipt Date: 20140401
  Transmission Date: 20141212
  Serious: Yes (Hospitalization)
  Sender: FDA-Public Use
  Company Number: FR-PFIZER INC-2014086736

PATIENT
  Age: 50 Year
  Sex: Female

DRUGS (7)
  1. DALACINE [Suspect]
     Indication: ERYSIPELAS
     Dosage: 3 DF, 1X/DAY
     Route: 048
     Dates: start: 20140207, end: 20140213
  2. CANDESARTAN CILEXETIL [Concomitant]
  3. SIMVASTATIN [Concomitant]
  4. LEVOTHYROX [Concomitant]
     Dosage: 150 UG, UNK
  5. BECLO-RINO [Concomitant]
     Dosage: 50 UG, UNK
  6. PYOSTACINE [Concomitant]
     Indication: ERYSIPELAS
     Dosage: UNK
     Dates: start: 20140203, end: 20140204
  7. PENICILLIN G [Concomitant]
     Indication: ERYSIPELAS
     Dosage: UNK
     Dates: start: 20140204, end: 20140207

REACTIONS (3)
  - Rash maculo-papular [Recovering/Resolving]
  - Eosinophilia [Unknown]
  - Oedema [Recovering/Resolving]
